FAERS Safety Report 20862837 (Version 1)
Quarter: 2022Q2

REPORT INFORMATION
  Report Type: Report from Study
  Country: CA (occurrence: CA)
  Receive Date: 20220523
  Receipt Date: 20220523
  Transmission Date: 20220720
  Serious: Yes (Other)
  Sender: FDA-Public Use
  Company Number: CA-BRISTOL-MYERS SQUIBB COMPANY-2022-037037

PATIENT
  Age: 72 Year
  Sex: Male

DRUGS (1)
  1. REBLOZYL [Suspect]
     Active Substance: LUSPATERCEPT-AAMT
     Indication: Myelodysplastic syndrome
     Dosage: MG, 1/3 WEEKS, ROUTE OF ADMIN: INJ
     Route: 065
     Dates: start: 20210917

REACTIONS (2)
  - Dyspnoea [Unknown]
  - Hypoxia [Unknown]
